FAERS Safety Report 5627735-7 (Version None)
Quarter: 2008Q1

REPORT INFORMATION
  Report Type: 
  Country: None (occurrence: None)
  Receive Date: 20080214
  Receipt Date: 20080214
  Transmission Date: 20080703
  Serious: Yes (Other)
  Sender: FDA-Public Use
  Company Number: None

PATIENT
  Age: 54 Year
  Sex: Female
  Weight: 144 kg

DRUGS (2)
  1. ZOSYN [Suspect]
     Indication: APPENDICITIS
     Dosage: 2.25 MG EVERY 6 HR IV
     Route: 042
     Dates: start: 20080122, end: 20080127
  2. ZOSYN [Suspect]
     Indication: APPENDICITIS
     Dosage: 2.25 MG EVERY 6 HR IV
     Route: 042
     Dates: start: 20080127

REACTIONS (1)
  - RENAL IMPAIRMENT [None]
